FAERS Safety Report 9215190 (Version 1)
Quarter: 2013Q2

REPORT INFORMATION
  Report Type: Spontaneous
  Country: US (occurrence: US)
  Receive Date: 20130405
  Receipt Date: 20130405
  Transmission Date: 20140414
  Serious: Yes (Hospitalization, Other)
  Sender: FDA-Public Use
  Company Number: US-PFIZER INC-2013107977

PATIENT
  Age: 36 Year
  Sex: Male
  Weight: 68.03 kg

DRUGS (2)
  1. DILANTIN [Suspect]
     Indication: PETIT MAL EPILEPSY
     Dosage: UNK
     Route: 048
  2. PHENYTOIN [Suspect]
     Indication: PETIT MAL EPILEPSY
     Dosage: UNK

REACTIONS (7)
  - Convulsion [Unknown]
  - Influenza [Unknown]
  - Anticonvulsant drug level below therapeutic [Unknown]
  - Malaise [Unknown]
  - Ear infection [Unknown]
  - Eye infection [Unknown]
  - Weight decreased [Unknown]
